FAERS Safety Report 9292306 (Version 1)
Quarter: 2013Q2

REPORT INFORMATION
  Report Type: Spontaneous
  Country: PT (occurrence: None)
  Receive Date: 20130513
  Receipt Date: 20130513
  Transmission Date: 20140414
  Serious: Yes (Other)
  Sender: FDA-Public Use
  Company Number: FK201301493

PATIENT
  Age: 53 Year
  Sex: Male

DRUGS (2)
  1. ACYCLOVIR SODIUM (MANUFACTURER UNKNOWN) (ACYCLOVIR SODIUM) (ACYCLOVIR SODIUM) [Suspect]
     Indication: RETINITIS VIRAL
     Dosage: INTRAVENOUS (NOT OTHERWISE SPECIFIED)?
  2. METHYLPREDNISOLONE) (METHYLPREDNISOLONE) [Concomitant]

REACTIONS (1)
  - Acute generalised exanthematous pustulosis [None]
